FAERS Safety Report 9344732 (Version 1)
Quarter: 2013Q2

REPORT INFORMATION
  Report Type: Spontaneous
  Country: US (occurrence: US)
  Receive Date: 20130612
  Receipt Date: 20130612
  Transmission Date: 20140414
  Serious: Yes (Hospitalization)
  Sender: FDA-Public Use
  Company Number: US-GLAXOSMITHKLINE-A0790575A

PATIENT
  Age: 45 Year
  Sex: Male
  Weight: 156.4 kg

DRUGS (2)
  1. AVANDIA [Suspect]
     Indication: DIABETES MELLITUS
     Dosage: 4MG TWICE PER DAY
     Route: 048
     Dates: start: 20051130, end: 20061212
  2. AVANDAMET [Suspect]
     Indication: DIABETES MELLITUS
     Route: 048
     Dates: start: 20041129, end: 20100215

REACTIONS (3)
  - Myocardial infarction [Unknown]
  - Vitreous detachment [Unknown]
  - Diabetic retinopathy [Unknown]
